FAERS Safety Report 6663497-2 (Version None)
Quarter: 2010Q2

REPORT INFORMATION
  Report Type: 
  Country: None (occurrence: None)
  Receive Date: 20100401
  Receipt Date: 20100322
  Transmission Date: 20101027
  Serious: Yes (Hospitalization, Other)
  Sender: FDA-Public Use
  Company Number: ES-PFIZER INC-2010014785

PATIENT
  Age: 16 Year
  Sex: Male
  Weight: 59 kg

DRUGS (4)
  1. CELSENTRI [Suspect]
     Indication: HIV INFECTION
     Dosage: 600 MG, 2X/DAY
     Route: 048
     Dates: start: 20100121, end: 20100129
  2. CELSENTRI [Suspect]
     Dosage: 600 MG, 2X/DAY
     Dates: start: 20100208
  3. ETRAVIRINE [Suspect]
     Indication: HIV INFECTION
     Dosage: UNK
     Dates: start: 20100121, end: 20100129
  4. RALTEGRAVIR [Concomitant]
     Indication: HIV INFECTION
     Dosage: UNK
     Dates: start: 20100121

REACTIONS (3)
  - ANGIOEDEMA [None]
  - RASH [None]
  - RESPIRATORY DISORDER [None]
